FAERS Safety Report 9414655 (Version 1)
Quarter: 2013Q3

REPORT INFORMATION
  Report Type: Spontaneous
  Country: US (occurrence: US)
  Receive Date: 20130723
  Receipt Date: 20130723
  Transmission Date: 20140515
  Serious: Yes (Death)
  Sender: FDA-Public Use
  Company Number: US-ALLERGAN-1310678US

PATIENT
  Age: 87 Year
  Sex: Male

DRUGS (1)
  1. ALPHAGAN? P [Suspect]
     Indication: PRODUCT USED FOR UNKNOWN INDICATION
     Dosage: UNK
     Dates: start: 20090127, end: 201203

REACTIONS (1)
  - Death [Fatal]
